FAERS Safety Report 20068628 (Version 6)
Quarter: 2024Q4

REPORT INFORMATION
  Report Type: Report from Study
  Country: US (occurrence: US)
  Receive Date: 20211115
  Receipt Date: 20241226
  Transmission Date: 20250114
  Serious: Yes (Hospitalization, Other)
  Sender: SANOFI AVENTIS
  Company Number: US-SANOFI-00847632

PATIENT
  Age: 62 Year
  Sex: Female

DRUGS (22)
  1. DUPILUMAB [Suspect]
     Active Substance: DUPILUMAB
     Indication: Asthma
     Dosage: 600 MG, 1X
     Route: 058
     Dates: start: 20211105, end: 20211105
  2. DUPILUMAB [Suspect]
     Active Substance: DUPILUMAB
     Dosage: 300 MG, QOW
     Route: 058
     Dates: start: 202111
  3. BUPROPION [Concomitant]
     Active Substance: BUPROPION
     Dosage: UNK
  4. MYRBETRIQ [Concomitant]
     Active Substance: MIRABEGRON
     Dosage: UNK
  5. FORADIL [Concomitant]
     Active Substance: FORMOTEROL FUMARATE
     Dosage: UNK
  6. KETOCONAZOLE [Concomitant]
     Active Substance: KETOCONAZOLE
  7. TOUJEO [Concomitant]
     Active Substance: INSULIN GLARGINE
  8. NUFERA [Concomitant]
     Active Substance: ASCORBIC ACID\CHOLECALCIFEROL\CYANOCOBALAMIN\FOLIC ACID\IRON PENTACARBONYL\LEVOMEFOLATE MAGNESIUM\PY
  9. RESTASIS [Concomitant]
     Active Substance: CYCLOSPORINE
  10. CLONAZEPAM [Concomitant]
     Active Substance: CLONAZEPAM
  11. MONTELUKAST [Concomitant]
     Active Substance: MONTELUKAST SODIUM
  12. VITAMIN B12 [Concomitant]
     Active Substance: CYANOCOBALAMIN
  13. FLUTICASONE [Concomitant]
     Active Substance: FLUTICASONE
  14. ABILIFY [Concomitant]
     Active Substance: ARIPIPRAZOLE
  15. DEXAMETHASONE [Concomitant]
     Active Substance: DEXAMETHASONE
  16. ALLOPURINOL [Concomitant]
     Active Substance: ALLOPURINOL
  17. ONDANSETRON [Concomitant]
     Active Substance: ONDANSETRON
  18. PULMICORT FLEXHALER [Concomitant]
     Active Substance: BUDESONIDE
  19. HUMALOG [Concomitant]
     Active Substance: INSULIN LISPRO
  20. LEVOTHYROXINE [Concomitant]
     Active Substance: LEVOTHYROXINE
  21. DUONEB [Concomitant]
     Active Substance: ALBUTEROL SULFATE\IPRATROPIUM BROMIDE
  22. GLUCAGEN [Concomitant]
     Active Substance: GLUCAGON HYDROCHLORIDE
     Dosage: UNK

REACTIONS (11)
  - Cellulitis [Unknown]
  - Pain in extremity [Unknown]
  - Decreased appetite [Unknown]
  - Weight decreased [Unknown]
  - Pneumonia [Recovering/Resolving]
  - Asthma [Recovered/Resolved]
  - Pneumonia bacterial [Not Recovered/Not Resolved]
  - Pneumonia viral [Not Recovered/Not Resolved]
  - Hypoxia [Unknown]
  - Cough [Not Recovered/Not Resolved]
  - Dysphonia [Not Recovered/Not Resolved]

NARRATIVE: CASE EVENT DATE: 20211105
